FAERS Safety Report 20813770 (Version 3)
Quarter: 2022Q4

REPORT INFORMATION
  Report Type: Spontaneous
  Country: US (occurrence: US)
  Receive Date: 20220511
  Receipt Date: 20221013
  Transmission Date: 20230113
  Serious: No
  Sender: FDA-Public Use
  Company Number: US-CELGENE-USA-20220302496

PATIENT
  Age: 76 Year
  Sex: Female
  Weight: 56.7 kg

DRUGS (3)
  1. REVLIMID [Suspect]
     Active Substance: LENALIDOMIDE
     Indication: Plasma cell myeloma
     Dosage: DAILY 14 ON 7 OFF
     Route: 048
  2. REVLIMID [Suspect]
     Active Substance: LENALIDOMIDE
     Dosage: 25 MILLIGRAM
     Route: 048
     Dates: start: 202112
  3. REVLIMID [Suspect]
     Active Substance: LENALIDOMIDE
     Dosage: DAILY X14D, 7D OFF
     Route: 048
     Dates: start: 202112

REACTIONS (7)
  - Abdominal discomfort [Recovering/Resolving]
  - Diarrhoea [Unknown]
  - Platelet count decreased [Unknown]
  - Blood pressure decreased [Unknown]
  - Taste disorder [Unknown]
  - Abdominal pain [Unknown]
  - Blood glucose decreased [Unknown]

NARRATIVE: CASE EVENT DATE: 20220214
